FAERS Safety Report 4399940-1 (Version None)
Quarter: 2004Q3

REPORT INFORMATION
  Report Type: 
  Country: None (occurrence: None)
  Receive Date: 20040714
  Receipt Date: 20040706
  Transmission Date: 20050211
  Serious: Yes (Other)
  Sender: FDA-Public Use
  Company Number: US013401

PATIENT
  Age: 71 Year
  Sex: Male

DRUGS (6)
  1. ALERTEC [Suspect]
     Dosage: 200 MG QD; ORAL
     Route: 048
  2. CLONAZEPAM [Concomitant]
  3. CLONIDINE HCL [Concomitant]
  4. ASPIRIN ENTERIC COATED K.P. [Concomitant]
  5. FERROUS SULFATE TAB [Concomitant]
  6. LIPITOR [Concomitant]

REACTIONS (2)
  - DISORIENTATION [None]
  - MEMORY IMPAIRMENT [None]
